FAERS Safety Report 9630283 (Version 1)
Quarter: 2013Q4

REPORT INFORMATION
  Report Type: Spontaneous
  Country: GR (occurrence: GR)
  Receive Date: 20131017
  Receipt Date: 20131017
  Transmission Date: 20140711
  Serious: Yes (Other)
  Sender: FDA-Public Use
  Company Number: GR-PFIZER INC-2013295795

PATIENT
  Age: 44 Year
  Sex: Female

DRUGS (4)
  1. METHYLPREDNISOLONE [Suspect]
     Indication: ANAL ABSCESS
     Dosage: UNK
  2. MEROPENEM [Suspect]
     Indication: ANAL ABSCESS
     Dosage: UNK
     Route: 042
  3. ENOXAPARINE [Suspect]
     Indication: PROPHYLAXIS
     Dosage: UNK
  4. ADALIMUMAB [Suspect]
     Indication: CROHN^S DISEASE
     Dosage: UNK

REACTIONS (1)
  - Cerebral venous thrombosis [Recovered/Resolved]
